FAERS Safety Report 6055149-7 (Version None)
Quarter: 2009Q1

REPORT INFORMATION
  Report Type: 
  Country: None (occurrence: None)
  Receive Date: 20090122
  Receipt Date: 20090108
  Transmission Date: 20090719
  Serious: Yes (Death)
  Sender: FDA-Public Use
  Company Number: 039942

PATIENT
  Age: 61 Year
  Sex: Female

DRUGS (1)
  1. VERAPAMIL HCL [Suspect]

REACTIONS (3)
  - COMPLETED SUICIDE [None]
  - DRUG TOXICITY [None]
  - INTENTIONAL DRUG MISUSE [None]
